FAERS Safety Report 19798711 (Version 1)
Quarter: 2021Q3

REPORT INFORMATION
  Report Type: Spontaneous
  Country: GR (occurrence: GR)
  Receive Date: 20210907
  Receipt Date: 20210907
  Transmission Date: 20211014
  Serious: Yes (Other)
  Sender: FDA-Public Use
  Company Number: GR-ASTRAZENECA-2021A708197

PATIENT
  Age: 65 Year
  Sex: Male

DRUGS (2)
  1. ZIRUS [Suspect]
     Active Substance: ROSUVASTATIN CALCIUM
     Dosage: 1X1
     Route: 048
  2. COMIRNATY [Suspect]
     Active Substance: TOZINAMERAN
     Route: 030
     Dates: start: 20210520

REACTIONS (2)
  - Cerebrovascular accident [Recovered/Resolved with Sequelae]
  - Tinnitus [Recovered/Resolved]

NARRATIVE: CASE EVENT DATE: 20210522
